FAERS Safety Report 6456502-X (Version None)
Quarter: 2009Q4

REPORT INFORMATION
  Report Type: 
  Country: None (occurrence: None)
  Receive Date: 20091125
  Receipt Date: 20090710
  Transmission Date: 20100525
  Serious: No
  Sender: FDA-Public Use
  Company Number: US-BAYER-200929420NA

PATIENT

DRUGS (2)
  1. MAGNEVIST [Suspect]
     Indication: DRUG USE FOR UNKNOWN INDICATION
     Dosage: AS USED: 20 ML
  2. MAGNEVIST [Suspect]

REACTIONS (3)
  - DISORIENTATION [None]
  - DIZZINESS [None]
  - NAUSEA [None]
